FAERS Safety Report 8614485-8 (Version None)
Quarter: 2012Q3

REPORT INFORMATION
  Report Type: 
  Country: None (occurrence: None)
  Receive Date: 20120823
  Receipt Date: 20120814
  Transmission Date: 20120928
  Serious: Yes (Hospitalization)
  Sender: FDA-Public Use
  Company Number: PHHY2012FR038345

PATIENT
  Age: 28 Year
  Sex: Male

DRUGS (5)
  1. SANDOSTATIN [Concomitant]
  2. CLOZAPINE [Suspect]
     Indication: SCHIZOPHRENIA
     Dosage: 120 MG, QD
     Route: 048
     Dates: start: 20120111, end: 20120101
  3. CLOZAPINE [Suspect]
     Dates: end: 20120201
  4. HALOPERIDOL LACTATE [Suspect]
     Dates: end: 20120101
  5. PERIKABIVEN [Concomitant]

REACTIONS (15)
  - GASTROINTESTINAL NECROSIS [None]
  - HYPERLACTACIDAEMIA [None]
  - ASCITES [None]
  - INTESTINAL ISCHAEMIA [None]
  - INTESTINAL OBSTRUCTION [None]
  - ABDOMINAL DISTENSION [None]
  - DYSURIA [None]
  - COLITIS ISCHAEMIC [None]
  - PALLOR [None]
  - CONSTIPATION [None]
  - ABDOMINAL PAIN [None]
  - SEPTIC SHOCK [None]
  - HYPOTENSION [None]
  - PERIPHERAL COLDNESS [None]
  - TACHYCARDIA [None]
